FAERS Safety Report 11116876 (Version 2)
Quarter: 2015Q3

REPORT INFORMATION
  Report Type: Spontaneous
  Country: BE (occurrence: BE)
  Receive Date: 20150515
  Receipt Date: 20150708
  Transmission Date: 20151125
  Serious: Yes (Other)
  Sender: FDA-Public Use
  Company Number: BE-ASTRAZENECA-2015SE17305

PATIENT
  Age: 14661 Day
  Sex: Male
  Weight: 88 kg

DRUGS (3)
  1. METFORMAX [Concomitant]
     Active Substance: METFORMIN HYDROCHLORIDE
  2. BYDUREON [Suspect]
     Active Substance: EXENATIDE
     Indication: DIABETES MELLITUS
     Dosage: WEEKLY
     Route: 058
     Dates: start: 20141228, end: 20150210
  3. TOTALIP [Concomitant]
     Active Substance: ATORVASTATIN

REACTIONS (1)
  - Injection site nodule [Unknown]

NARRATIVE: CASE EVENT DATE: 20141229
